FAERS Safety Report 23445383 (Version 1)
Quarter: 2024Q1

REPORT INFORMATION
  Report Type: Spontaneous
  Country: US (occurrence: US)
  Receive Date: 20240126
  Receipt Date: 20240126
  Transmission Date: 20240410
  Serious: No
  Sender: FDA-Public Use
  Company Number: US-JNJFOC-20240147727

PATIENT
  Sex: Male

DRUGS (1)
  1. MENS ROGAINE EXTRA STRENGTH [Suspect]
     Active Substance: MINOXIDIL
     Indication: Alopecia
     Dosage: DOSE + FREQUENCY: ONE ML FROM THE DROPPER AND SOMETIMES ONCE A DAY SOMETIMES TWICE.
     Route: 065

REACTIONS (3)
  - Inappropriate schedule of product administration [Unknown]
  - Underdose [Unknown]
  - Suspected counterfeit product [Unknown]
